FAERS Safety Report 17347554 (Version 1)
Quarter: 2020Q1

REPORT INFORMATION
  Report Type: Report from Study
  Country: US (occurrence: US)
  Receive Date: 20200129
  Receipt Date: 20200129
  Transmission Date: 20200409
  Serious: No
  Sender: FDA-Public Use
  Company Number: US-EXELIXIS-CABO-19023379

PATIENT
  Age: 79 Year
  Sex: Female

DRUGS (8)
  1. CABOMETYX [Suspect]
     Active Substance: CABOZANTINIB S-MALATE
     Indication: RENAL CANCER
     Dosage: 40 MG, QD
     Route: 048
     Dates: start: 20190816
  2. CABOMETYX [Suspect]
     Active Substance: CABOZANTINIB S-MALATE
     Dosage: UNK (DECREASED DOSE)
     Route: 048
  3. LEVOTHYROXINE SODIUM. [Concomitant]
     Active Substance: LEVOTHYROXINE SODIUM
     Dosage: UNK
  4. PREDNISONE. [Concomitant]
     Active Substance: PREDNISONE
     Dosage: UNK
  5. ALLOPURINOL. [Concomitant]
     Active Substance: ALLOPURINOL
     Dosage: UNK
  6. CARVEDILOL. [Concomitant]
     Active Substance: CARVEDILOL
     Dosage: UNK
  7. ASPIRIN. [Concomitant]
     Active Substance: ASPIRIN
     Dosage: UNK
  8. FAMOTIDINE. [Concomitant]
     Active Substance: FAMOTIDINE
     Dosage: UNK

REACTIONS (5)
  - Fatigue [Recovered/Resolved]
  - Vomiting [Recovered/Resolved]
  - Blood pressure fluctuation [Not Recovered/Not Resolved]
  - Nausea [Recovered/Resolved]
  - Diarrhoea [Recovered/Resolved]

NARRATIVE: CASE EVENT DATE: 20190910
